FAERS Safety Report 17237412 (Version 6)
Quarter: 2020Q2

REPORT INFORMATION
  Report Type: Report from Study
  Country: DE (occurrence: DE)
  Receive Date: 20200106
  Receipt Date: 20200609
  Transmission Date: 20200713
  Serious: Yes (Hospitalization, Other)
  Sender: FDA-Public Use
  Company Number: DE-MYLANLABS-2020M1000159

PATIENT
  Sex: Female
  Weight: 59 kg

DRUGS (3)
  1. KISQALI [Suspect]
     Active Substance: RIBOCICLIB
     Indication: BREAST CANCER METASTATIC
     Dosage: 600 MG, QD (21 DAYS INTAKE, 7 DAYS PAUSE)
     Route: 048
     Dates: start: 20190801
  2. FULVESTRANT. [Suspect]
     Active Substance: FULVESTRANT
     Indication: BREAST CANCER METASTATIC
  3. FULVESTRANT. [Suspect]
     Active Substance: FULVESTRANT
     Indication: BREAST CANCER
     Dosage: 500 MG, QD (DAILY DOSE)
     Route: 058
     Dates: start: 20190801

REACTIONS (10)
  - Lymphoedema [Not Recovered/Not Resolved]
  - Pleural neoplasm [Recovered/Resolved]
  - Dyspnoea [Recovered/Resolved with Sequelae]
  - Cystitis [Recovered/Resolved]
  - Sleep disorder [Not Recovered/Not Resolved]
  - Malignant pleural effusion [Recovered/Resolved with Sequelae]
  - Alopecia [Not Recovered/Not Resolved]
  - Bone pain [Not Recovered/Not Resolved]
  - Diarrhoea [Not Recovered/Not Resolved]
  - Dyspnoea exertional [Not Recovered/Not Resolved]

NARRATIVE: CASE EVENT DATE: 20190801
